FAERS Safety Report 4567146-9 (Version None)
Quarter: 2005Q1

REPORT INFORMATION
  Report Type: 
  Country: None (occurrence: None)
  Receive Date: 20050127
  Receipt Date: 20050111
  Transmission Date: 20050727
  Serious: Yes (Other)
  Sender: FDA-Public Use
  Company Number: 2004-0007496

PATIENT
  Age: 49 Year
  Sex: Female
  Weight: 69.9 kg

DRUGS (25)
  1. EMTRICITABINE (EMTRICITABINE) [Suspect]
     Indication: HIV INFECTION
     Dosage: 200 MG 1 IN 1 D ORAL
     Route: 048
     Dates: start: 20010411, end: 20040924
  2. KALETRA [Concomitant]
  3. ZERIT [Concomitant]
  4. PAXIL [Concomitant]
  5. ATIVAN [Concomitant]
  6. ATARAX [Concomitant]
  7. HOMATROPINE (HOMATROPINE) [Concomitant]
  8. PREDFORTE (PREDNISOLONE ACETATE) [Concomitant]
  9. FLUCONAZOLE [Concomitant]
  10. MS CONTIN [Concomitant]
  11. ALBUTEROL [Concomitant]
  12. PERCOCET [Concomitant]
  13. TRAZODONE (TRAZODONE) [Concomitant]
  14. MOTRIN [Concomitant]
  15. ELAVIL [Concomitant]
  16. VIOXX [Concomitant]
  17. OSCAL D3        (OYSTER SHELL CALCIUM WITH VITAMIN D) [Concomitant]
  18. TORADOL [Concomitant]
  19. METHADON HCL TAB [Concomitant]
  20. COLACE (DOCUSATE SODIUM) [Concomitant]
  21. ZANTAC [Concomitant]
  22. IBUPROFEN [Concomitant]
  23. AUGMENTIN (AMOXICILLIN W/CLAVULANATE POTASSIUM) [Concomitant]
  24. CLEOCIN [Concomitant]
  25. VALIUM [Concomitant]

REACTIONS (15)
  - ALCOHOL WITHDRAWAL SYNDROME [None]
  - ALCOHOLISM [None]
  - ASPARTATE AMINOTRANSFERASE INCREASED [None]
  - BIPOLAR DISORDER [None]
  - BLOOD BILIRUBIN INCREASED [None]
  - COMMUNICATION DISORDER [None]
  - CONDITION AGGRAVATED [None]
  - DELIRIUM [None]
  - DRUG SCREEN POSITIVE [None]
  - DRUG WITHDRAWAL SYNDROME [None]
  - GAMMA-GLUTAMYLTRANSFERASE INCREASED [None]
  - HALLUCINATION [None]
  - PANCREATITIS [None]
  - PNEUMONIA [None]
  - TREATMENT NONCOMPLIANCE [None]
